FAERS Safety Report 21776000 (Version 1)
Quarter: 2022Q4

REPORT INFORMATION
  Report Type: Spontaneous
  Country: US (occurrence: US)
  Receive Date: 20221226
  Receipt Date: 20221226
  Transmission Date: 20230112
  Serious: No
  Sender: FDA-Public Use
  Company Number: US-Accord-275448

PATIENT
  Sex: Female
  Weight: 90.72 kg

DRUGS (4)
  1. BUPROPION [Suspect]
     Active Substance: BUPROPION
     Indication: Depression
     Dosage: EXTENDED-RELEASE TABLETS, STRENGTH: 150MG, DAILY
     Route: 048
     Dates: start: 20220627, end: 20220817
  2. OMEPRAZOLE [Concomitant]
     Active Substance: OMEPRAZOLE
  3. AMLODIPINE [Concomitant]
     Active Substance: AMLODIPINE BESYLATE
     Indication: Hypertension
  4. HYDROCHLOROTHIAZIDE [Concomitant]
     Active Substance: HYDROCHLOROTHIAZIDE
     Indication: Hypertension
     Dosage: WATER FOR PILL

REACTIONS (1)
  - Product odour abnormal [Unknown]
